FAERS Safety Report 6164599-X (Version None)
Quarter: 2009Q2

REPORT INFORMATION
  Report Type: 
  Country: None (occurrence: None)
  Receive Date: 20090423
  Receipt Date: 20090413
  Transmission Date: 20091009
  Serious: Yes (Hospitalization, Other)
  Sender: FDA-Public Use
  Company Number: US-JNJFOC-20090305200

PATIENT
  Sex: Female
  Weight: 43.09 kg

DRUGS (2)
  1. DOXIL [Suspect]
     Route: 042
  2. DOXIL [Suspect]
     Indication: OVARIAN CANCER RECURRENT
     Route: 042

REACTIONS (4)
  - BREAST CANCER [None]
  - BURSITIS [None]
  - NAUSEA [None]
  - RASH [None]
